FAERS Safety Report 18813699 (Version 2)
Quarter: 2021Q2

REPORT INFORMATION
  Report Type: Other
  Country: US (occurrence: US)
  Receive Date: 20210201
  Receipt Date: 20210416
  Transmission Date: 20210717
  Serious: Yes (Hospitalization)
  Sender: FDA-Public Use
  Company Number: US-INTERCEPT-PM2019002278

PATIENT
  Sex: Female

DRUGS (2)
  1. OCALIVA [Suspect]
     Active Substance: OBETICHOLIC ACID
     Indication: PRIMARY BILIARY CHOLANGITIS
     Dosage: 5 MILLIGRAM, QD
     Route: 048
     Dates: start: 20191204, end: 202001
  2. OCALIVA [Suspect]
     Active Substance: OBETICHOLIC ACID
     Dosage: 5 MILLIGRAM, QD
     Route: 048
     Dates: start: 20200715

REACTIONS (9)
  - Diarrhoea [Recovered/Resolved]
  - Hospitalisation [Unknown]
  - Liver disorder [Not Recovered/Not Resolved]
  - Insurance issue [Recovered/Resolved]
  - Pruritus [Recovered/Resolved]
  - Loss of personal independence in daily activities [Not Recovered/Not Resolved]
  - Rash [Unknown]
  - Therapy interrupted [Recovered/Resolved]
  - Blood alkaline phosphatase abnormal [Unknown]

NARRATIVE: CASE EVENT DATE: 2020
